FAERS Safety Report 21031329 (Version 3)
Quarter: 2025Q2

REPORT INFORMATION
  Report Type: Spontaneous
  Country: US (occurrence: US)
  Receive Date: 20220701
  Receipt Date: 20250407
  Transmission Date: 20250717
  Serious: No
  Sender: ROCHE
  Company Number: US-ROCHE-3056848

PATIENT
  Sex: Female

DRUGS (2)
  1. ACTEMRA [Suspect]
     Active Substance: TOCILIZUMAB
     Indication: Rheumatoid arthritis
     Dosage: STRENGTH: 162MG/0.9ML
     Route: 058
     Dates: start: 20200914
  2. ACTEMRA [Suspect]
     Active Substance: TOCILIZUMAB
     Dosage: STRENGTH: 162MG/0.9ML
     Route: 058
     Dates: start: 202008

REACTIONS (3)
  - Joint swelling [Unknown]
  - Arthralgia [Unknown]
  - Drug ineffective [Unknown]
